FAERS Safety Report 21965899 (Version 2)
Quarter: 2023Q1

REPORT INFORMATION
  Report Type: Report from Study
  Country: AU (occurrence: AU)
  Receive Date: 20230208
  Receipt Date: 20230210
  Transmission Date: 20230418
  Serious: Yes (Hospitalization)
  Sender: FDA-Public Use
  Company Number: AU-ImmunoGen, Inc.-2021IMGN000069

PATIENT

DRUGS (14)
  1. MIRVETUXIMAB SORAVTANSINE [Suspect]
     Active Substance: MIRVETUXIMAB SORAVTANSINE
     Indication: Ovarian cancer stage III
     Dosage: 6 MICROGRAM/KILOGRAM, 3W
     Route: 042
     Dates: start: 20210507, end: 20210617
  2. MIRVETUXIMAB SORAVTANSINE [Suspect]
     Active Substance: MIRVETUXIMAB SORAVTANSINE
     Dosage: 6 MICROGRAM/KILOGRAM, 3W
     Route: 042
     Dates: start: 20210806
  3. CITALOPRAM HYDROBROMIDE [Concomitant]
     Active Substance: CITALOPRAM HYDROBROMIDE
     Indication: Depression
     Dosage: 30 MILLIGRAM, QD
     Route: 048
  4. EPILIM [Concomitant]
     Active Substance: VALPROATE SODIUM
     Indication: Bipolar disorder
     Dosage: 500 MILLIGRAM, 2 TABLETS AT NIGHT
     Route: 048
     Dates: start: 200304
  5. EUTROXSIG [Concomitant]
     Active Substance: LEVOTHYROXINE SODIUM
     Indication: Hypothyroidism
     Dosage: 0.05 MILLIGRAM, QD
     Route: 048
     Dates: start: 200304
  6. ATORVASTATIN [Concomitant]
     Active Substance: ATORVASTATIN
     Indication: Blood cholesterol
     Dosage: 20 MILLIGRAM, QD
     Route: 048
     Dates: start: 2018
  7. MAXIDEX [Concomitant]
     Active Substance: DEXAMETHASONE
     Indication: Prophylaxis
     Dosage: AS PER PROTOCOL
     Dates: start: 20210507
  8. OPTIFRESH PLUS [Concomitant]
     Indication: Prophylaxis
     Dosage: AS PER PROTOCOL
     Dates: start: 20210507
  9. NATURE^S OWN MAGNESIUM CHELATE [Concomitant]
     Indication: Supplementation therapy
     Dosage: 500 MILLIGRAM, 2 CAPSULES PER DAY
     Route: 048
     Dates: start: 20210513
  10. PALONOSETRON [Concomitant]
     Active Substance: PALONOSETRON
     Indication: Premedication
     Dosage: 250 MICROGRAM STAT
     Route: 042
     Dates: start: 20210528, end: 20210528
  11. DEXAMETHASONE [Concomitant]
     Active Substance: DEXAMETHASONE
     Indication: Premedication
     Dosage: 12 MILLIGRAM STAT
     Route: 042
     Dates: start: 20210528, end: 20210528
  12. ACETAMINOPHEN [Concomitant]
     Active Substance: ACETAMINOPHEN
     Indication: Premedication
     Dosage: 1 GRAM STAT
     Route: 048
     Dates: start: 20210528, end: 20210528
  13. LORATADINE [Concomitant]
     Active Substance: LORATADINE
     Indication: Premedication
     Dosage: 10 MILLIGRAM STAT
     Route: 048
     Dates: start: 20210528, end: 20210528
  14. LIPEGFILGRASTIM [Concomitant]
     Active Substance: LIPEGFILGRASTIM
     Indication: Product used for unknown indication
     Dosage: 6 MILLIGRAM
     Route: 048
     Dates: start: 20210528

REACTIONS (1)
  - Vasculitis [Recovered/Resolved]

NARRATIVE: CASE EVENT DATE: 20210617
